FAERS Safety Report 9190952 (Version 2)
Quarter: 2013Q2

REPORT INFORMATION
  Report Type: Spontaneous
  Country: JP (occurrence: JP)
  Receive Date: 20130326
  Receipt Date: 20130522
  Transmission Date: 20140414
  Serious: Yes (Other)
  Sender: FDA-Public Use
  Company Number: JP-ROCHE-1206149

PATIENT
  Age: 1 Month
  Sex: Female
  Weight: 3.46 kg

DRUGS (3)
  1. TAMIFLU [Suspect]
     Indication: INFLUENZA
     Route: 064
     Dates: start: 20130119, end: 20130121
  2. CALONAL [Concomitant]
     Indication: NASOPHARYNGITIS
     Route: 064
     Dates: start: 20130117, end: 20130120
  3. SHO-SEIRYU-TO [Concomitant]
     Indication: NASOPHARYNGITIS
     Route: 064
     Dates: start: 20130117, end: 20130120

REACTIONS (2)
  - Maternal exposure timing unspecified [Unknown]
  - Foetal arrhythmia [Recovered/Resolved]
